FAERS Safety Report 6861484-2 (Version None)
Quarter: 2010Q3

REPORT INFORMATION
  Report Type: 
  Country: None (occurrence: None)
  Receive Date: 20100715
  Receipt Date: 20100630
  Transmission Date: 20110219
  Serious: Yes (Death, Hospitalization)
  Sender: FDA-Public Use
  Company Number: 1000014995

PATIENT
  Age: 70 Year
  Sex: Female

DRUGS (25)
  1. CITALOPRAM HYDROBROMIDE [Suspect]
  2. AMITRIPTYLINE HCL [Suspect]
     Indication: DEPRESSION
  3. METFROMIN [Suspect]
     Indication: TYPE 2 DIABETES MELLITUS
     Dosage: ORAL
     Route: 048
  4. ENALAPRIL [Suspect]
     Indication: HYPERTENSION
  5. ACETYLSALICYLIC ACID SRT [Suspect]
     Indication: MYOCARDIAL ISCHAEMIA
  6. SIMVASTATIN [Suspect]
     Indication: HYPERLIPIDAEMIA
  7. THEOPHYLLINE [Suspect]
     Indication: BRONCHITIS CHRONIC
  8. FURUSEMID [Suspect]
     Indication: HYPERTENSION
  9. OMEPRAZOLE [Suspect]
     Indication: BACTERAEMIA
  10. VANCOMYCIN [Suspect]
     Indication: BACTERAEMIA
  11. LEVOFLOXACIN [Suspect]
     Indication: BACTERAEMIA
  12. AMPICILLIN SODIUM [Suspect]
     Indication: BACTERAEMIA
  13. PIPERACILLIN [Suspect]
     Indication: BACTERAEMIA
  14. AMIKACIN [Suspect]
     Indication: BACTERAEMIA
  15. HYDROCORTISONE [Suspect]
     Indication: TOXIC EPIDERMAL NECROLYSIS
     Dosage: 500 MG, INTRAVENOUS (NOT OTHERWISE SPECIFIED)
     Route: 042
  16. CEFTRIAXONE [Suspect]
     Indication: PNEUMONIA
  17. GLIBENCLAMIDE [Suspect]
     Indication: TYPE 2 DIABETES MELLITUS
  18. IMMUNE GLOBULIN NOS [Suspect]
     Dosage: 40 MG (40 GM, 1 IN 1 D), INTRAVENOUS (NOT OTHERWISE SPECIFIED)
     Route: 042
  19. TAZOBACTAM [Suspect]
  20. CIPROFLOXACIN [Suspect]
     Indication: BACTERAEMIA
  21. VERAPAMIL [Suspect]
  22. LATANOPROST [Concomitant]
  23. DORZOLAMIDE [Concomitant]
  24. DEXTROSE [Concomitant]
  25. MAGNESIUM SULFATE [Concomitant]

REACTIONS (18)
  - ACUTE RESPIRATORY DISTRESS SYNDROME [None]
  - BACTERIAL INFECTION [None]
  - BLOOD CULTURE POSITIVE [None]
  - BLOOD GLUCOSE DECREASED [None]
  - BURNS SECOND DEGREE [None]
  - ENTEROBACTER INFECTION [None]
  - ENTEROCOCCAL INFECTION [None]
  - ERYTHEMA [None]
  - HAEMORRHAGE [None]
  - HAEMORRHAGE INTRACRANIAL [None]
  - HYPOGLYCAEMIA [None]
  - HYPOMAGNESAEMIA [None]
  - LEUKOPENIA [None]
  - PNEUMONIA KLEBSIELLA [None]
  - PROTEUS INFECTION [None]
  - PSEUDOMONAS INFECTION [None]
  - THROMBOCYTOPENIA [None]
  - TOXIC EPIDERMAL NECROLYSIS [None]
